FAERS Safety Report 25218784 (Version 1)
Quarter: 2025Q2

REPORT INFORMATION
  Report Type: Spontaneous
  Country: US (occurrence: US)
  Receive Date: 20250421
  Receipt Date: 20250421
  Transmission Date: 20250717
  Serious: No
  Sender: AMGEN
  Company Number: US-AMGEN-USASP2025076335

PATIENT
  Age: 75 Year
  Sex: Male

DRUGS (5)
  1. PREDNISONE [Suspect]
     Active Substance: PREDNISONE
     Indication: Pemphigoid
     Route: 065
  2. POLYMYXIN B [Concomitant]
     Active Substance: POLYMYXIN B
  3. TRIMETHOPRIM [Concomitant]
     Active Substance: TRIMETHOPRIM
     Indication: Conjunctivitis
  4. AZATHIOPRINE [Concomitant]
     Active Substance: AZATHIOPRINE
     Indication: Pemphigoid
  5. BARIUM [Concomitant]
     Active Substance: BARIUM

REACTIONS (4)
  - Drug effective for unapproved indication [Unknown]
  - Weight decreased [Unknown]
  - Dysphagia [Recovered/Resolved]
  - Off label use [Unknown]
